FAERS Safety Report 20109783 (Version 2)
Quarter: 2021Q4

REPORT INFORMATION
  Report Type: Report from Study
  Country: US (occurrence: None)
  Receive Date: 20211124
  Receipt Date: 20211210
  Transmission Date: 20220303
  Serious: Yes (Hospitalization)
  Sender: FDA-Public Use
  Company Number: US-Eisai Medical Research-EC-2021-103672

PATIENT
  Age: 79 Year
  Sex: Female

DRUGS (6)
  1. LENVIMA [Suspect]
     Active Substance: LENVATINIB
     Indication: Uterine cancer
     Route: 048
     Dates: start: 20210825, end: 20211110
  2. LENVIMA [Suspect]
     Active Substance: LENVATINIB
     Indication: Endometrial cancer
  3. LENVIMA [Suspect]
     Active Substance: LENVATINIB
     Indication: Uterine cancer
  4. LENVIMA [Suspect]
     Active Substance: LENVATINIB
     Indication: Malignant nervous system neoplasm
  5. KEYTRUDA [Concomitant]
     Active Substance: PEMBROLIZUMAB
  6. LISINOPRIL [Concomitant]
     Active Substance: LISINOPRIL

REACTIONS (4)
  - Urogenital fistula [Not Recovered/Not Resolved]
  - Female genital tract fistula [Recovering/Resolving]
  - Cerebrovascular accident [Not Recovered/Not Resolved]
  - Urosepsis [Recovering/Resolving]

NARRATIVE: CASE EVENT DATE: 20210101
